FAERS Safety Report 10235008 (Version 2)
Quarter: 2014Q2

REPORT INFORMATION
  Report Type: Report from Study
  Country: PH (occurrence: PH)
  Receive Date: 20140613
  Receipt Date: 20140613
  Transmission Date: 20141212
  Serious: Yes (Other)
  Sender: FDA-Public Use
  Company Number: PHHY2009PH070480

PATIENT
  Age: 29 Year
  Sex: Female

DRUGS (7)
  1. GLIVEC [Suspect]
     Indication: CHRONIC MYELOID LEUKAEMIA
     Dosage: 400 MG, PER DAY
     Dates: start: 20080620
  2. GLIVEC [Suspect]
     Dosage: 400 MG, PER DAY
     Dates: start: 20090529
  3. HYDROXYUREA [Concomitant]
     Dosage: UNK UKN, UNK
  4. RED BLOOD CELLS [Concomitant]
     Dosage: 5 U, UNK
     Dates: start: 200905
  5. FOLIC ACID [Concomitant]
     Indication: ANAEMIA
     Dosage: 1 DF, BID
     Route: 048
     Dates: start: 20080805
  6. FOLIC ACID [Concomitant]
     Dosage: 1 DF, QD
     Route: 048
     Dates: end: 20090518
  7. ESOMEPRAZOLE [Concomitant]
     Indication: ABDOMINAL PAIN UPPER
     Dosage: 20 MG, QD
     Route: 048
     Dates: start: 20081017, end: 20081031

REACTIONS (6)
  - Nephrolithiasis [Unknown]
  - Peptic ulcer haemorrhage [Unknown]
  - Anaemia [Recovered/Resolved]
  - Renal colic [Unknown]
  - Abdominal pain upper [Unknown]
  - Pyrexia [Unknown]
